FAERS Safety Report 8243679-9 (Version None)
Quarter: 2012Q1

REPORT INFORMATION
  Report Type: 
  Country: None (occurrence: None)
  Receive Date: 20120329
  Receipt Date: 20120323
  Transmission Date: 20120608
  Serious: Yes (Hospitalization)
  Sender: FDA-Public Use
  Company Number: US-NOVEN-12US004359

PATIENT
  Sex: Female

DRUGS (1)
  1. FENTANYL [Suspect]
     Indication: ARTHRITIS
     Dosage: 25 UG/HR, UNK
     Route: 062
     Dates: start: 20111001

REACTIONS (1)
  - CHOLECYSTECTOMY [None]
